FAERS Safety Report 25063245 (Version 1)
Quarter: 2025Q1

REPORT INFORMATION
  Report Type: Spontaneous
  Country: ID (occurrence: ID)
  Receive Date: 20250311
  Receipt Date: 20250311
  Transmission Date: 20250408
  Serious: Yes (Hospitalization)
  Sender: AMGEN
  Company Number: ID-SERVIER-S25002909

PATIENT
  Age: 1 Year

DRUGS (9)
  1. IVABRADINE [Suspect]
     Active Substance: IVABRADINE
     Indication: Tachyarrhythmia
     Route: 065
  2. IVABRADINE [Suspect]
     Active Substance: IVABRADINE
     Dosage: 2 DF, QD
     Route: 065
  3. IVABRADINE [Suspect]
     Active Substance: IVABRADINE
     Dosage: 1 DF, QD
     Route: 065
  4. AMIODARONE [Concomitant]
     Active Substance: AMIODARONE
     Indication: Tachyarrhythmia
     Route: 065
  5. ADENOSINE [Concomitant]
     Active Substance: ADENOSINE
     Indication: Supraventricular tachycardia
     Route: 065
  6. ADENOSINE [Concomitant]
     Active Substance: ADENOSINE
     Route: 065
  7. ADENOSINE [Concomitant]
     Active Substance: ADENOSINE
     Route: 065
  8. PROPRANOLOL [Concomitant]
     Active Substance: PROPRANOLOL HYDROCHLORIDE
     Indication: Tachyarrhythmia
     Route: 065
  9. DIGOXIN [Concomitant]
     Active Substance: DIGOXIN
     Indication: Product used for unknown indication
     Route: 065

REACTIONS (2)
  - Atelectasis [Unknown]
  - Product use issue [Recovered/Resolved]
